FAERS Safety Report 4600565-0 (Version None)
Quarter: 2005Q1

REPORT INFORMATION
  Report Type: 
  Country: None (occurrence: None)
  Receive Date: 20050304
  Receipt Date: 20050222
  Transmission Date: 20050727
  Serious: Yes (Hospitalization)
  Sender: FDA-Public Use
  Company Number: 2005036101

PATIENT
  Age: 76 Year
  Sex: Female

DRUGS (2)
  1. LINEZOLID TABLET (LINEZOLID) [Suspect]
     Indication: INFECTION
     Dosage: 1.2 GRAM (INTERVAL: EVERY DAY), ORAL
     Route: 048
     Dates: start: 20050112, end: 20050118
  2. VANCOMYCIN HYDROCHLORIDE [Suspect]
     Indication: INFECTION
     Dosage: 1.5 GRAM (INTERVAL: EVERYDAY), INTRAVENOUS
     Route: 042
     Dates: start: 20041217, end: 20050119

REACTIONS (3)
  - ANAEMIA [None]
  - IMPLANT SITE INFECTION [None]
  - RENAL FAILURE ACUTE [None]
